FAERS Safety Report 18712028 (Version 1)
Quarter: 2021Q1

REPORT INFORMATION
  Report Type: Spontaneous
  Country: US (occurrence: US)
  Receive Date: 20210106
  Receipt Date: 20210106
  Transmission Date: 20210419
  Serious: Yes (Hospitalization)
  Sender: FDA-Public Use
  Company Number: None

PATIENT
  Age: 68 Year
  Sex: Female

DRUGS (11)
  1. ATENOLOL. [Concomitant]
     Active Substance: ATENOLOL
  2. GABAPENTIN. [Concomitant]
     Active Substance: GABAPENTIN
  3. ONDANSETRON [Concomitant]
     Active Substance: ONDANSETRON
  4. HUMIRA [Suspect]
     Active Substance: ADALIMUMAB
     Indication: RHEUMATOID ARTHRITIS
     Route: 058
     Dates: start: 20190828
  5. METOPROL SUC ER [Concomitant]
     Active Substance: METOPROLOL SUCCINATE
  6. PLAQUENIL [Concomitant]
     Active Substance: HYDROXYCHLOROQUINE SULFATE
  7. VENLAFAXINE [Concomitant]
     Active Substance: VENLAFAXINE HYDROCHLORIDE
  8. ZOLIPIDEM [Concomitant]
  9. HYDROCO/APAP [Concomitant]
     Active Substance: ACETAMINOPHEN\HYDROCODONE
  10. RABEPRAZOLE [Concomitant]
     Active Substance: RABEPRAZOLE
  11. LOSARTAN POT [Concomitant]
     Active Substance: LOSARTAN POTASSIUM

REACTIONS (2)
  - Therapy interrupted [None]
  - Ankle operation [None]

NARRATIVE: CASE EVENT DATE: 20201009
